FAERS Safety Report 11423901 (Version 1)
Quarter: 2015Q3

REPORT INFORMATION
  Report Type: Spontaneous
  Country: US (occurrence: US)
  Receive Date: 20150827
  Receipt Date: 20150827
  Transmission Date: 20151125
  Serious: No
  Sender: FDA-Public Use
  Company Number: US-JNJFOC-20150315165

PATIENT

DRUGS (4)
  1. PYRIMETHAMINE [Suspect]
     Active Substance: PYRIMETHAMINE
     Indication: PRODUCT USED FOR UNKNOWN INDICATION
     Route: 048
  2. MINOCYCLINE [Suspect]
     Active Substance: MINOCYCLINE\MINOCYCLINE HYDROCHLORIDE
     Indication: PRODUCT USED FOR UNKNOWN INDICATION
     Route: 048
  3. N-ACETYLCYSTEINE [Suspect]
     Active Substance: ACETYLCYSTEINE
     Indication: CENTRAL NERVOUS SYSTEM INFLAMMATION
     Route: 048
  4. IBUPROFEN. [Suspect]
     Active Substance: IBUPROFEN
     Indication: PRODUCT USED FOR UNKNOWN INDICATION
     Route: 048

REACTIONS (1)
  - Toxicity to various agents [Recovered/Resolved]
